FAERS Safety Report 8976278 (Version 2)
Quarter: 2013Q1

REPORT INFORMATION
  Report Type: Spontaneous
  Country: BE (occurrence: BE)
  Receive Date: 20121220
  Receipt Date: 20130320
  Transmission Date: 20140127
  Serious: Yes (Other)
  Sender: FDA-Public Use
  Company Number: BE-UCBSA-073384

PATIENT
  Age: 65 None
  Sex: Female
  Weight: 75 kg

DRUGS (4)
  1. CIMZIA [Suspect]
     Indication: RHEUMATOID ARTHRITIS
     Route: 058
     Dates: start: 201208, end: 20121110
  2. CIMZIA [Suspect]
     Indication: RHEUMATOID ARTHRITIS
     Route: 058
     Dates: start: 20121201
  3. BELSAR [Concomitant]
  4. DICLOFENAC [Concomitant]

REACTIONS (3)
  - Cystitis escherichia [Recovered/Resolved]
  - Psoriasis [Recovered/Resolved]
  - Transaminases increased [Unknown]
